FAERS Safety Report 26099273 (Version 1)
Quarter: 2025Q4

REPORT INFORMATION
  Report Type: Spontaneous
  Country: CA (occurrence: CA)
  Receive Date: 20251128
  Receipt Date: 20251128
  Transmission Date: 20260117
  Serious: Yes (Hospitalization, Other)
  Sender: BRISTOL-MYERS SQUIBB COMPANY
  Company Number: CA-BRISTOL-MYERS SQUIBB COMPANY-2025-159667

PATIENT
  Age: 77 Year
  Sex: Male

DRUGS (1)
  1. ELIQUIS [Suspect]
     Active Substance: APIXABAN
     Indication: Product used for unknown indication

REACTIONS (6)
  - Ischaemic stroke [Not Recovered/Not Resolved]
  - Haematochezia [Unknown]
  - Anaemia [Unknown]
  - Embolism arterial [Unknown]
  - Fall [Unknown]
  - Colitis [Unknown]

NARRATIVE: CASE EVENT DATE: 20251014
